FAERS Safety Report 4363921-4 (Version None)
Quarter: 2004Q2

REPORT INFORMATION
  Report Type: 
  Country: None (occurrence: None)
  Receive Date: 20040525
  Receipt Date: 20040422
  Transmission Date: 20050107
  Serious: Yes (Life-Threatening)
  Sender: FDA-Public Use
  Company Number: PHHO2004CA05965

PATIENT
  Age: 44 Year
  Sex: Male

DRUGS (29)
  1. CLOZARIL [Suspect]
     Dosage: 200 MG, QHS
     Route: 048
     Dates: start: 20040120, end: 20040422
  2. FLAGYL [Concomitant]
  3. PERCOCET [Concomitant]
     Dosage: 2 TABS, BID
     Route: 048
  4. CELEXA [Concomitant]
     Dosage: QD
     Route: 048
  5. RITALIN [Concomitant]
     Route: 048
  6. ZANTAC [Concomitant]
     Dosage: BID
     Route: 048
  7. RISPERDAL [Concomitant]
     Dosage: 3 MG, BID
  8. TRAZODONE HCL [Concomitant]
     Dosage: 50 MG, QHS
     Route: 048
  9. LACTULOSE [Concomitant]
     Dosage: 30 ML, TID
     Route: 048
  10. MULTI-VITAMINS [Concomitant]
     Dosage: QD
     Route: 048
  11. ANCEF [Concomitant]
     Dosage: 1 G, Q8H
     Dates: end: 20040401
  12. ANCEF [Concomitant]
     Dosage: NO TREATMENT
     Dates: start: 20040402
  13. KEFLEX [Concomitant]
     Dosage: 500 MG, QD
     Dates: end: 20040325
  14. KEFLEX [Concomitant]
     Dosage: NO TREATMENT
     Dates: start: 20040326
  15. PIPERACILLIN W/TAZOBACTAM [Concomitant]
     Dosage: 4.5 G, Q8H
  16. TAZOCIN [Suspect]
  17. TINZAPARIN [Concomitant]
     Dosage: QD
     Route: 058
  18. TYLENOL [Concomitant]
     Dosage: 650 MG,
  19. CALCIUM [Concomitant]
     Dosage: QD
     Route: 048
  20. ASPIRIN [Concomitant]
     Dosage: 650 MG, BID
     Route: 048
  21. COLACE [Concomitant]
     Dosage: 100 MG, BID
     Route: 048
  22. SOFRA-TUELL [Concomitant]
     Dosage: TID
     Route: 061
  23. HYDROCORTISONE [Concomitant]
     Dosage: TID
     Route: 061
  24. HYDROMORPH CONTIN [Concomitant]
     Dosage: 15 MG, BID
     Route: 048
  25. BISACODYL [Concomitant]
     Route: 048
  26. GRAVOL TAB [Concomitant]
     Route: 048
  27. UROJET [Concomitant]
     Dosage: PRN
     Route: 061
  28. MOM [Concomitant]
     Route: 048
  29. FLEET [Concomitant]

REACTIONS (7)
  - DRUG INTERACTION [None]
  - FRACTURE [None]
  - NEUTROPENIA [None]
  - OSTEOMYELITIS [None]
  - SUICIDE ATTEMPT [None]
  - SURGERY [None]
  - WHITE BLOOD CELL COUNT DECREASED [None]
